FAERS Safety Report 24160071 (Version 1)
Quarter: 2024Q3

REPORT INFORMATION
  Report Type: Spontaneous
  Country: US (occurrence: US)
  Receive Date: 20240801
  Receipt Date: 20240801
  Transmission Date: 20241017
  Serious: Yes (Death, Hospitalization, Other)
  Sender: STRIDES
  Company Number: US-STRIDES ARCOLAB LIMITED-2024SP009493

PATIENT
  Age: 17 Year
  Sex: Female
  Weight: 45 kg

DRUGS (12)
  1. ALBENDAZOLE [Suspect]
     Active Substance: ALBENDAZOLE
     Indication: Plasmodium falciparum infection
     Dosage: UNK
     Route: 065
     Dates: start: 2019
  2. ALBENDAZOLE [Suspect]
     Active Substance: ALBENDAZOLE
     Indication: Ebola disease
  3. OMEPRAZOLE [Suspect]
     Active Substance: OMEPRAZOLE
     Indication: Plasmodium falciparum infection
     Dosage: UNK
     Route: 065
     Dates: start: 2019
  4. OMEPRAZOLE [Suspect]
     Active Substance: OMEPRAZOLE
     Indication: Ebola disease
  5. ARTESUNATE [Suspect]
     Active Substance: ARTESUNATE
     Indication: Plasmodium falciparum infection
     Dosage: UNK
     Route: 065
     Dates: start: 2019
  6. ARTESUNATE [Suspect]
     Active Substance: ARTESUNATE
     Indication: Ebola disease
  7. CEFTRIAXONE [Suspect]
     Active Substance: CEFTRIAXONE\CEFTRIAXONE SODIUM
     Indication: Plasmodium falciparum infection
     Dosage: UNK
     Route: 065
     Dates: start: 2019
  8. CEFTRIAXONE [Suspect]
     Active Substance: CEFTRIAXONE\CEFTRIAXONE SODIUM
     Indication: Ebola disease
  9. ACETAMINOPHEN [Suspect]
     Active Substance: ACETAMINOPHEN
     Indication: Plasmodium falciparum infection
     Dosage: UNK
     Route: 065
     Dates: start: 2019
  10. ACETAMINOPHEN [Suspect]
     Active Substance: ACETAMINOPHEN
     Indication: Ebola disease
  11. EBANGA [Suspect]
     Active Substance: ANSUVIMAB-ZYKL
     Indication: Ebola disease
     Dosage: 50 MILLIGRAM/KILOGRAM, SINGLE (RECEIVED SINGLE INFUSION)
     Route: 042
     Dates: start: 2019, end: 2019
  12. ERVEBO [Suspect]
     Active Substance: RECOMBINANT ZAIRE EBOLAVIRUS KIKWIT-95 ENVELOPE GLYCOPROTEIN MODIFIED VESICULAR STOMATITIS VIRUS
     Indication: Immunisation
     Dosage: UNK
     Route: 065
     Dates: start: 201909, end: 2019

REACTIONS (4)
  - Postpartum haemorrhage [Fatal]
  - Premature delivery [Unknown]
  - Maternal exposure during pregnancy [Unknown]
  - Off label use [Unknown]

NARRATIVE: CASE EVENT DATE: 20190101
